FAERS Safety Report 12128001 (Version 1)
Quarter: 2016Q1

REPORT INFORMATION
  Report Type: Spontaneous
  Country: US (occurrence: US)
  Receive Date: 20160226
  Receipt Date: 20160226
  Transmission Date: 20160526
  Serious: No
  Sender: FDA-Public Use
  Company Number: US-ALLERGAN-1511220US

PATIENT
  Age: 93 Year
  Sex: Female
  Weight: 80.73 kg

DRUGS (8)
  1. TRAVATAN [Concomitant]
     Active Substance: TRAVOPROST
     Indication: GLAUCOMA
     Route: 047
  2. DORZOLOMIDE HYDROCHLORIDE [Concomitant]
     Route: 047
  3. DESONIDE. [Concomitant]
     Active Substance: DESONIDE
     Indication: ECZEMA
     Route: 061
  4. REFRESH OPTIVE [Suspect]
     Active Substance: CARBOXYMETHYLCELLULOSE SODIUM\GLYCERIN
     Indication: DRY EYE
     Dosage: 8-10 X PER DAY
     Route: 047
  5. FUROSEMIDE. [Concomitant]
     Active Substance: FUROSEMIDE
     Indication: DIURETIC THERAPY
     Route: 048
  6. EQUA [Concomitant]
     Active Substance: VILDAGLIPTIN
     Indication: ARTHRITIS
  7. LORATADINE. [Concomitant]
     Active Substance: LORATADINE
     Indication: HYPERSENSITIVITY
     Route: 048
  8. WARFARIN [Concomitant]
     Active Substance: WARFARIN
     Indication: THROMBOSIS
     Route: 048

REACTIONS (1)
  - Medication error [Unknown]

NARRATIVE: CASE EVENT DATE: 201506
